FAERS Safety Report 9731430 (Version 1)
Quarter: 2013Q4

REPORT INFORMATION
  Report Type: Spontaneous
  Country: US (occurrence: None)
  Receive Date: 20131204
  Receipt Date: 20131204
  Transmission Date: 20140711
  Serious: No
  Sender: FDA-Public Use
  Company Number: None

PATIENT
  Age: 64 Year
  Sex: Female
  Weight: 82.1 kg

DRUGS (1)
  1. OMEPRAZOLE [Suspect]
     Indication: FLATULENCE
     Route: 048
     Dates: start: 20130503, end: 20130702

REACTIONS (2)
  - Dry mouth [None]
  - Dysgeusia [None]
